FAERS Safety Report 5811959-X (Version None)
Quarter: 2008Q3

REPORT INFORMATION
  Report Type: 
  Country: None (occurrence: None)
  Receive Date: 20080716
  Receipt Date: 20080714
  Transmission Date: 20090109
  Serious: Yes (Other)
  Sender: FDA-Public Use
  Company Number: US-ASTRAZENECA-2008UW14069

PATIENT
  Age: 31 Year
  Sex: Female
  Weight: 59.9 kg

DRUGS (3)
  1. CRESTOR [Suspect]
     Indication: BLOOD CHOLESTEROL INCREASED
     Route: 048
     Dates: start: 20080711
  2. NEXIUM [Concomitant]
     Route: 048
  3. BENADRYL [Concomitant]

REACTIONS (4)
  - FACE OEDEMA [None]
  - PRURITUS [None]
  - RASH [None]
  - RETCHING [None]
